FAERS Safety Report 15088768 (Version 7)
Quarter: 2019Q2

REPORT INFORMATION
  Report Type: Spontaneous
  Country: US (occurrence: US)
  Receive Date: 20180629
  Receipt Date: 20190506
  Transmission Date: 20190711
  Serious: Yes (Other)
  Sender: FDA-Public Use
  Company Number: US-PFIZER INC-2018263529

PATIENT
  Age: 58 Year
  Sex: Male
  Weight: 73 kg

DRUGS (8)
  1. VFEND [Suspect]
     Active Substance: VORICONAZOLE
     Indication: ASPERGILLUS INFECTION
     Dosage: 200 MG, DAILY
     Route: 048
  2. VFEND [Suspect]
     Active Substance: VORICONAZOLE
     Dosage: 200 MG, 2X/DAY
     Route: 048
     Dates: start: 20180320, end: 20180727
  3. COUMADIN [Concomitant]
     Active Substance: WARFARIN SODIUM
     Indication: ANTICOAGULANT THERAPY
     Dosage: 2.5 MG, DAILY
     Route: 048
  4. COUMADIN [Concomitant]
     Active Substance: WARFARIN SODIUM
     Dosage: 1.5 MG, 1X/DAY
     Route: 048
  5. VFEND [Suspect]
     Active Substance: VORICONAZOLE
     Dosage: UNK
  6. VFEND [Suspect]
     Active Substance: VORICONAZOLE
     Indication: VASCULAR DEVICE INFECTION
     Dosage: 200 MG, 2X/DAY
     Route: 048
     Dates: start: 201804
  7. VFEND [Suspect]
     Active Substance: VORICONAZOLE
     Dosage: 300 MG, DAILY (200 IN AM AND 100 MG IN PM, NEED 300 MG - 60 DAYS SUPPLIES)
  8. VFEND [Suspect]
     Active Substance: VORICONAZOLE
     Dosage: 400 MG, UNK

REACTIONS (15)
  - Feeling jittery [Unknown]
  - Peripheral swelling [Unknown]
  - International normalised ratio abnormal [Recovered/Resolved]
  - Pruritus generalised [Unknown]
  - Rash [Recovered/Resolved]
  - Dyspnoea [Unknown]
  - Epistaxis [Recovered/Resolved]
  - Dizziness [Unknown]
  - Fluid retention [Unknown]
  - Visual impairment [Recovered/Resolved]
  - Haemoglobin decreased [Unknown]
  - Nausea [Unknown]
  - Mouth haemorrhage [Recovered/Resolved]
  - Product use issue [Unknown]
  - Insomnia [Unknown]

NARRATIVE: CASE EVENT DATE: 201805
